FAERS Safety Report 9875538 (Version 2)
Quarter: 2014Q1

REPORT INFORMATION
  Report Type: Other
  Country: US (occurrence: US)
  Receive Date: 20140206
  Receipt Date: 20140206
  Transmission Date: 20141002
  Serious: No
  Sender: FDA-Public Use
  Company Number: US-ACORDA-ACO_36205_2013

PATIENT
  Age: 71 Year
  Sex: Female
  Weight: 69.39 kg

DRUGS (9)
  1. AMPYRA [Suspect]
     Indication: GAIT DISTURBANCE
     Dosage: 10 MG, Q 12 HRS
     Route: 048
     Dates: start: 20100702, end: 20130506
  2. LOSARTAN [Suspect]
     Indication: HYPERTENSION
     Dosage: 50 MG, QD
     Route: 048
     Dates: start: 201210, end: 20130311
  3. LOSARTAN [Suspect]
     Dosage: 100 MG, QD
     Route: 048
     Dates: start: 20130312
  4. HYDROCHLOROTHIAZIDE [Suspect]
     Indication: HYPERTENSION
     Dosage: 25 MG, QD
     Route: 048
     Dates: start: 201211, end: 2012
  5. HYDROCHLOROTHIAZIDE [Suspect]
     Dosage: 25 MG, QD
     Route: 048
     Dates: start: 20130321
  6. AVONEX [Concomitant]
     Indication: MULTIPLE SCLEROSIS
     Dosage: UNK
     Dates: start: 2000
  7. LEVOTHYROXINE [Concomitant]
     Indication: THYROID DISORDER
     Dosage: 0.05 MG, UNK
  8. PAROXETINE [Concomitant]
     Indication: DEPRESSION
     Dosage: 20 MG, UNK
     Dates: start: 2008
  9. OXYBUTYNIN [Concomitant]
     Indication: AUTOMATIC BLADDER
     Dosage: 10 MG, UNK

REACTIONS (6)
  - Drug eruption [Unknown]
  - Perivascular dermatitis [Not Recovered/Not Resolved]
  - Acarodermatitis [Unknown]
  - Hypertension [Recovered/Resolved]
  - Fall [Unknown]
  - Walking aid user [Unknown]
